FAERS Safety Report 10394162 (Version 2)
Quarter: 2014Q3

REPORT INFORMATION
  Report Type: Spontaneous
  Country: JP (occurrence: JP)
  Receive Date: 20140819
  Receipt Date: 20140907
  Transmission Date: 20150326
  Serious: Yes (Death, Other)
  Sender: FDA-Public Use
  Company Number: PHHY2012JP135123

PATIENT
  Age: 78 Year
  Sex: Female

DRUGS (2)
  1. METENOLONE ACETATE [Concomitant]
     Dosage: UNK UKN, UNK
  2. EXJADE [Suspect]
     Active Substance: DEFERASIROX
     Indication: MYELODYSPLASTIC SYNDROME
     Dosage: 9.4 MG/KG, DAILY
     Dates: start: 20080911

REACTIONS (2)
  - Myelodysplastic syndrome [Fatal]
  - Pyelonephritis [Unknown]
